FAERS Safety Report 5771527-5 (Version None)
Quarter: 2008Q2

REPORT INFORMATION
  Report Type: 
  Country: None (occurrence: None)
  Receive Date: 20080613
  Receipt Date: 20080606
  Transmission Date: 20081010
  Serious: Yes (Hospitalization)
  Sender: FDA-Public Use
  Company Number: FR-WYE-G01680208

PATIENT
  Sex: Male
  Weight: 12 kg

DRUGS (2)
  1. ADVIL [Suspect]
     Indication: PYREXIA
     Dosage: UNKNOWN
     Route: 048
     Dates: start: 20080213, end: 20080215
  2. DOLIPRANE [Suspect]
     Indication: PYREXIA
     Dosage: UNKNOWN
     Route: 048
     Dates: start: 20080213

REACTIONS (3)
  - DRUG INEFFECTIVE [None]
  - PYREXIA [None]
  - VOMITING [None]
